FAERS Safety Report 9640203 (Version 2)
Quarter: 2013Q4

REPORT INFORMATION
  Report Type: Spontaneous
  Country: US (occurrence: US)
  Receive Date: 20131023
  Receipt Date: 20131108
  Transmission Date: 20140711
  Serious: No
  Sender: FDA-Public Use
  Company Number: US-PFIZER INC-2013301802

PATIENT
  Age: 50 Year
  Sex: Female

DRUGS (6)
  1. XELJANZ [Suspect]
     Indication: RHEUMATOID ARTHRITIS
     Dosage: UNK, BID
     Route: 048
     Dates: start: 20130811
  2. PREDNISONE [Suspect]
     Dosage: UNK
  3. SPIRIVA [Concomitant]
     Indication: CHRONIC OBSTRUCTIVE PULMONARY DISEASE
     Dosage: 18 MCG HANDIHALER, 1 DAILY
  4. SPIRIVA [Concomitant]
     Indication: ASTHMA
  5. SYMBICORT [Concomitant]
     Indication: CHRONIC OBSTRUCTIVE PULMONARY DISEASE
     Dosage: BUDESONIDE 160/FORMOTEROL FUMARATE 4.5 MCG/ACT DAILY
  6. SYMBICORT [Concomitant]
     Indication: ASTHMA

REACTIONS (1)
  - Fatigue [Not Recovered/Not Resolved]
